FAERS Safety Report 9734200 (Version 1)
Quarter: 2013Q4

REPORT INFORMATION
  Report Type: Spontaneous
  Country: JP (occurrence: JP)
  Receive Date: 20131205
  Receipt Date: 20131205
  Transmission Date: 20140711
  Serious: Yes (Other)
  Sender: FDA-Public Use
  Company Number: JP-GILEAD-2013-0089039

PATIENT
  Age: 87 Year
  Sex: Female

DRUGS (2)
  1. HEPSERA [Suspect]
     Indication: PRODUCT USED FOR UNKNOWN INDICATION
     Route: 048
  2. ZEFIX /01221401/ [Suspect]
     Indication: PRODUCT USED FOR UNKNOWN INDICATION
     Route: 048

REACTIONS (8)
  - Hypocalcaemia [Recovering/Resolving]
  - Drug tolerance [Unknown]
  - Fanconi syndrome acquired [Recovering/Resolving]
  - Osteomalacia [Recovering/Resolving]
  - Bone density decreased [Recovering/Resolving]
  - Bone pain [Recovering/Resolving]
  - Hypophosphataemia [Recovering/Resolving]
  - Urine phosphorus increased [Recovering/Resolving]
